FAERS Safety Report 6408593-X (Version None)
Quarter: 2009Q4

REPORT INFORMATION
  Report Type: 
  Country: None (occurrence: None)
  Receive Date: 20091021
  Receipt Date: 20091016
  Transmission Date: 20100525
  Serious: Yes (Death, Hospitalization)
  Sender: FDA-Public Use
  Company Number: JP-BAYER-200813178BYL

PATIENT
  Age: 60 Year
  Sex: Male
  Weight: 56 kg

DRUGS (5)
  1. NEXAVAR [Suspect]
     Indication: RENAL CELL CARCINOMA STAGE IV
     Dosage: UNIT DOSE: 200 MG
     Route: 048
     Dates: start: 20080709, end: 20080728
  2. NOVORAPID [Concomitant]
     Route: 065
     Dates: start: 20080728
  3. NAIXAN [Concomitant]
     Route: 048
  4. KAMAG G [Concomitant]
     Route: 048
     Dates: start: 20080630, end: 20080728
  5. GASMOTIN [Concomitant]
     Route: 048
     Dates: start: 20080630, end: 20080728

REACTIONS (4)
  - DECREASED APPETITE [None]
  - MALAISE [None]
  - PYREXIA [None]
  - RENAL CELL CARCINOMA [None]
